FAERS Safety Report 13183656 (Version 2)
Quarter: 2017Q1

REPORT INFORMATION
  Report Type: Spontaneous
  Country: NZ (occurrence: NZ)
  Receive Date: 20170203
  Receipt Date: 20170224
  Transmission Date: 20170428
  Serious: Yes (Hospitalization)
  Sender: FDA-Public Use
  Company Number: NZ-GUERBET LLC-1062691

PATIENT
  Age: 67 Year
  Sex: Male

DRUGS (6)
  1. CILAZAPRIL [Concomitant]
     Active Substance: CILAZAPRIL ANHYDROUS
  2. DOXAZOSIN [Concomitant]
     Active Substance: DOXAZOSIN\DOXAZOSIN MESYLATE
  3. METFORMIN [Concomitant]
     Active Substance: METFORMIN HYDROCHLORIDE
  4. GLICLAZIDE [Concomitant]
     Active Substance: GLICLAZIDE
  5. SIMVASTATIN. [Concomitant]
     Active Substance: SIMVASTATIN
  6. DOTAREM [Suspect]
     Active Substance: GADOTERATE MEGLUMINE
     Indication: NUCLEAR MAGNETIC RESONANCE IMAGING RENAL
     Route: 042
     Dates: start: 20170105, end: 20170105

REACTIONS (2)
  - Type IV hypersensitivity reaction [Not Recovered/Not Resolved]
  - Rash maculo-papular [Not Recovered/Not Resolved]

NARRATIVE: CASE EVENT DATE: 20170127
